FAERS Safety Report 5166445-X (Version None)
Quarter: 2006Q4

REPORT INFORMATION
  Report Type: 
  Country: None (occurrence: None)
  Receive Date: 20061207
  Receipt Date: 20061201
  Transmission Date: 20070319
  Serious: Yes (Other)
  Sender: FDA-Public Use
  Company Number: US-JNJFOC-20061200876

PATIENT
  Sex: Female

DRUGS (11)
  1. INFLIXIMAB [Suspect]
     Indication: RHEUMATOID ARTHRITIS
     Route: 042
  2. METHOTREXATE [Concomitant]
  3. FOLIC ACID [Concomitant]
  4. HYDROCHLOROTHIAZIDE [Concomitant]
  5. FOSAMAX [Concomitant]
  6. LOTENSIN [Concomitant]
  7. MULTI-VITAMIN [Concomitant]
  8. PREDNISONE TAB [Concomitant]
  9. PREVACID [Concomitant]
  10. VICODIN [Concomitant]
  11. MOBIC [Concomitant]

REACTIONS (1)
  - BASAL CELL CARCINOMA [None]
